FAERS Safety Report 16578273 (Version 1)
Quarter: 2019Q3

REPORT INFORMATION
  Report Type: Spontaneous
  Country: FR (occurrence: FR)
  Receive Date: 20190716
  Receipt Date: 20190716
  Transmission Date: 20191004
  Serious: Yes (Hospitalization)
  Sender: FDA-Public Use
  Company Number: FR-009507513-1907FRA004833

PATIENT
  Age: 62 Year
  Sex: Female
  Weight: 45 kg

DRUGS (4)
  1. DOLIPRANE [Suspect]
     Active Substance: ACETAMINOPHEN
     Route: 048
     Dates: start: 20181223, end: 20181223
  2. LEXOMIL [Suspect]
     Active Substance: BROMAZEPAM
     Route: 048
     Dates: start: 20181223, end: 20181223
  3. ESCITALOPRAM [Suspect]
     Active Substance: ESCITALOPRAM OXALATE
     Route: 048
     Dates: start: 20181223, end: 20181223
  4. AERIUS (DESLORATADINE) [Suspect]
     Active Substance: DESLORATADINE
     Dosage: 35 MILLIGRAM
     Route: 048
     Dates: start: 20181223, end: 20181223

REACTIONS (3)
  - Coma [Recovered/Resolved]
  - Hypotension [Recovered/Resolved]
  - Poisoning deliberate [Recovered/Resolved with Sequelae]

NARRATIVE: CASE EVENT DATE: 20181223
